FAERS Safety Report 11234820 (Version 1)
Quarter: 2015Q3

REPORT INFORMATION
  Report Type: Spontaneous
  Country: JP (occurrence: JP)
  Receive Date: 20150702
  Receipt Date: 20150702
  Transmission Date: 20151125
  Serious: Yes (Hospitalization, Disabling)
  Sender: FDA-Public Use
  Company Number: JP-BAYER-2015-271940

PATIENT
  Age: 82 Year
  Sex: Female
  Weight: 42 kg

DRUGS (10)
  1. DABIGATRAN ETEXILATE [Suspect]
     Active Substance: DABIGATRAN ETEXILATE
     Dosage: 220 MG, UNK
     Route: 048
     Dates: start: 201309
  2. ACETYLSALICYLIC ACID({=100 MG) [Suspect]
     Active Substance: ASPIRIN
     Indication: ATRIAL FIBRILLATION
     Dosage: 100 MG, UNK
     Route: 048
  3. CYTOTEC [Concomitant]
     Active Substance: MISOPROSTOL
     Dosage: UNK
     Route: 048
  4. GASMOTIN [Concomitant]
     Active Substance: MOSAPRIDE CITRATE
     Dosage: UNK
     Route: 048
  5. NAUZELIN [Concomitant]
     Active Substance: DOMPERIDONE
     Dosage: UNK
     Route: 048
  6. DIART [Concomitant]
     Active Substance: AZOSEMIDE
     Dosage: 30 MG, QD
     Route: 048
     Dates: start: 201309
  7. CRESTOR [Concomitant]
     Active Substance: ROSUVASTATIN CALCIUM
     Dosage: 7.5 MG, QD
     Route: 048
  8. NEXIUM [Concomitant]
     Active Substance: ESOMEPRAZOLE MAGNESIUM
     Route: 048
  9. ALDACTONE A [Concomitant]
     Active Substance: SPIRONOLACTONE
     Dosage: UNK
     Route: 048
  10. LOXONIN [Concomitant]
     Active Substance: LOXOPROFEN SODIUM
     Dosage: UNK
     Route: 048

REACTIONS (4)
  - Subarachnoid haemorrhage [Not Recovered/Not Resolved]
  - Altered state of consciousness [Not Recovered/Not Resolved]
  - Hemiplegia [Not Recovered/Not Resolved]
  - Labelled drug-drug interaction medication error [None]

NARRATIVE: CASE EVENT DATE: 20140405
